FAERS Safety Report 7754143-5 (Version None)
Quarter: 2011Q3

REPORT INFORMATION
  Report Type: 
  Country: None (occurrence: None)
  Receive Date: 20110915
  Receipt Date: 20110906
  Transmission Date: 20111222
  Serious: Yes (Congenital Anomaly)
  Sender: FDA-Public Use
  Company Number: DE-TEVA-299596GER

PATIENT
  Age: 0 Year
  Sex: Male
  Weight: 3.3 kg

DRUGS (5)
  1. FOLIO FORTE [Concomitant]
     Dosage: .8 MILLIGRAM;
     Route: 064
     Dates: start: 20090615, end: 20101216
  2. NASENSPRAY [Concomitant]
     Route: 064
     Dates: start: 20101215, end: 20101217
  3. MIRTAZAPINE [Suspect]
     Dosage: 15 MILLIGRAM;
     Route: 064
     Dates: start: 20100805, end: 20110504
  4. COTRIM [Concomitant]
     Route: 064
     Dates: start: 20100815, end: 20100820
  5. ACETAMINOPHEN [Concomitant]
     Dosage: 500 MILLIGRAM;
     Route: 064
     Dates: start: 20101215, end: 20101217

REACTIONS (1)
  - HYPOSPADIAS [None]
